FAERS Safety Report 7349353-5 (Version None)
Quarter: 2011Q1

REPORT INFORMATION
  Report Type: 
  Country: None (occurrence: None)
  Receive Date: 20110314
  Receipt Date: 20100330
  Transmission Date: 20110831
  Serious: Yes (Hospitalization)
  Sender: FDA-Public Use
  Company Number: US-ABBOTT-10P-163-0633007-00

PATIENT
  Sex: Male

DRUGS (1)
  1. DEPAKOTE [Suspect]

REACTIONS (2)
  - AMMONIA INCREASED [None]
  - ENCEPHALOPATHY [None]
